FAERS Safety Report 12548764 (Version 1)
Quarter: 2016Q3

REPORT INFORMATION
  Report Type: Spontaneous
  Country: US (occurrence: None)
  Receive Date: 20160711
  Receipt Date: 20160711
  Transmission Date: 20161109
  Serious: Yes (Life-Threatening, Hospitalization, Disabling)
  Sender: FDA-Public Use
  Company Number: None

PATIENT
  Age: 64 Year
  Sex: Female
  Weight: 98.43 kg

DRUGS (16)
  1. VYTORIN [Concomitant]
     Active Substance: EZETIMIBE\SIMVASTATIN
  2. MACRODANTIN [Suspect]
     Active Substance: NITROFURANTOIN
     Indication: PROPHYLAXIS URINARY TRACT INFECTION
     Dosage: 1 PILL DAILY 1X DAILY MOUTH
     Route: 048
     Dates: start: 2011, end: 20160630
  3. ZABTAC [Concomitant]
  4. ISOSORBIDE. [Concomitant]
     Active Substance: ISOSORBIDE
  5. LANTUS [Concomitant]
     Active Substance: INSULIN GLARGINE
  6. MULTI VITAMIN [Concomitant]
     Active Substance: VITAMINS
  7. COUMADIN [Concomitant]
     Active Substance: WARFARIN SODIUM
  8. HYDRAZOLENE [Concomitant]
  9. REGULAR INSULIN [Concomitant]
     Active Substance: INSULIN NOS
  10. MONOPRIL [Concomitant]
     Active Substance: FOSINOPRIL SODIUM
  11. ZANTAC [Concomitant]
     Active Substance: RANITIDINE HYDROCHLORIDE
  12. COLACE [Concomitant]
     Active Substance: DOCUSATE SODIUM
  13. ATENOLOL. [Concomitant]
     Active Substance: ATENOLOL
  14. FLUXOTENE [Concomitant]
  15. DOXAZOSIN [Concomitant]
     Active Substance: DOXAZOSIN\DOXAZOSIN MESYLATE
  16. LASIX [Concomitant]
     Active Substance: FUROSEMIDE

REACTIONS (3)
  - Abasia [None]
  - Dyspnoea exertional [None]
  - Dizziness [None]

NARRATIVE: CASE EVENT DATE: 201603
